FAERS Safety Report 6522053-7 (Version None)
Quarter: 2009Q4

REPORT INFORMATION
  Report Type: 
  Country: None (occurrence: None)
  Receive Date: 20091230
  Receipt Date: 20091216
  Transmission Date: 20100525
  Serious: No
  Sender: FDA-Public Use
  Company Number: US-B.I. PHARMACEUTICALS,INC./RIDGEFIELD-2009-BP-14542BP

PATIENT
  Age: 86 Year
  Sex: Male

DRUGS (7)
  1. FLOMAX [Suspect]
     Indication: PROSTATOMEGALY
     Dosage: 0.4 MG
     Route: 048
     Dates: start: 20080401
  2. FUROSEMIDE [Concomitant]
     Indication: CARDIAC DISORDER
  3. DIGOXIN [Concomitant]
     Indication: CARDIAC DISORDER
  4. ENALAPRIL [Concomitant]
     Indication: CARDIAC DISORDER
  5. PLAVIX [Concomitant]
     Indication: CARDIAC DISORDER
  6. SINGULAIR [Concomitant]
     Indication: ASTHMA
  7. POTASSIUM [Concomitant]

REACTIONS (1)
  - VISION BLURRED [None]
